FAERS Safety Report 6416163-2 (Version None)
Quarter: 2009Q4

REPORT INFORMATION
  Report Type: 
  Country: None (occurrence: None)
  Receive Date: 20091022
  Receipt Date: 20091019
  Transmission Date: 20100525
  Serious: Yes (Hospitalization)
  Sender: FDA-Public Use
  Company Number: WAES 0907USA00321

PATIENT
  Age: 61 Year
  Sex: Female

DRUGS (4)
  1. JANUVIA         (SIFAGLIPTIN PHSOPHATE) [Suspect]
     Indication: TYPE 2 DIABETES MELLITUS
     Dosage: 100 MG/DAILY PO
     Route: 048
     Dates: start: 20090311, end: 20090603
  2. TAB PLACEBO (UNSPECIFIED) [Suspect]
     Indication: TYPE 2 DIABETES MELLITUS
     Dosage: PO
     Route: 048
     Dates: start: 20090311, end: 20090603
  3. ZOCOR [Concomitant]
  4. METFORMIN HCL [Concomitant]

REACTIONS (6)
  - DIZZINESS [None]
  - HAEMATOCRIT DECREASED [None]
  - HAEMOGLOBIN DECREASED [None]
  - RED BLOOD CELL COUNT DECREASED [None]
  - SINUSITIS [None]
  - THROMBOCYTOPENIA [None]
